FAERS Safety Report 4404119-0 (Version None)
Quarter: 2004Q3

REPORT INFORMATION
  Report Type: 
  Country: None (occurrence: None)
  Receive Date: 20040722
  Receipt Date: 20040414
  Transmission Date: 20050211
  Serious: No
  Sender: FDA-Public Use
  Company Number: US-BRISTOL-MYERS SQUIBB COMPANY-12560116

PATIENT
  Age: 47 Year
  Sex: Female

DRUGS (1)
  1. AMIKACIN SULFATE [Suspect]
     Indication: SEPSIS
     Dates: start: 20040405

REACTIONS (2)
  - GRAFT VERSUS HOST DISEASE [None]
  - STEVENS-JOHNSON SYNDROME [None]
